FAERS Safety Report 7030292-4 (Version None)
Quarter: 2010Q4

REPORT INFORMATION
  Report Type: 
  Country: None (occurrence: None)
  Receive Date: 20101006
  Receipt Date: 20100923
  Transmission Date: 20110411
  Serious: Yes (Hospitalization)
  Sender: FDA-Public Use
  Company Number: US-ELI_LILLY_AND_COMPANY-US201009007120

PATIENT
  Sex: Female

DRUGS (11)
  1. FORTEO [Suspect]
     Indication: OSTEOPOROSIS
     Dosage: 20 UG, DAILY (1/D)
     Dates: start: 20100827
  2. LIPITOR [Concomitant]
     Dosage: 10 MG, UNK
  3. LEVOTHYROXINE SODIUM [Concomitant]
     Indication: HYPOTHYROIDISM
     Dosage: 25 UG, UNK
  4. OMEPRAZOLE [Concomitant]
     Indication: ULCER
  5. CLONAZEPAM [Concomitant]
     Indication: INSOMNIA
  6. FISH OIL [Concomitant]
     Dosage: 1000 MG, UNK
  7. CENTRUM /00554501/ [Concomitant]
  8. CITRACAL [Concomitant]
  9. NASONEX [Concomitant]
     Indication: MULTIPLE ALLERGIES
  10. LEVETIRACETAM [Concomitant]
     Indication: CONVULSION
     Dosage: 500 MG, UNK
     Dates: start: 20100909, end: 20100910
  11. DARVOCET [Concomitant]
     Indication: HEADACHE

REACTIONS (3)
  - ARTERIAL DISORDER [None]
  - DYSARTHRIA [None]
  - FATIGUE [None]
